FAERS Safety Report 10696955 (Version 1)
Quarter: 2015Q1

REPORT INFORMATION
  Report Type: Spontaneous
  Country: US (occurrence: US)
  Receive Date: 20150108
  Receipt Date: 20150108
  Transmission Date: 20150721
  Serious: Yes (Other)
  Sender: FDA-Public Use
  Company Number: US-ROCHE-1517899

PATIENT
  Sex: Female

DRUGS (2)
  1. CRESTOR [Concomitant]
     Active Substance: ROSUVASTATIN CALCIUM
     Indication: BLOOD CHOLESTEROL
     Route: 065
  2. TAMIFLU [Suspect]
     Active Substance: OSELTAMIVIR PHOSPHATE
     Indication: INFLUENZA
     Route: 065
     Dates: start: 20141231, end: 20150101

REACTIONS (11)
  - Cough [Unknown]
  - Hypophagia [Unknown]
  - Pyrexia [Unknown]
  - Nausea [Unknown]
  - Bedridden [Unknown]
  - Chills [Unknown]
  - Motion sickness [Unknown]
  - Condition aggravated [Unknown]
  - Pain [Unknown]
  - Dysphagia [Unknown]
  - Oropharyngeal pain [Unknown]
